FAERS Safety Report 9418836 (Version 1)
Quarter: 2013Q3

REPORT INFORMATION
  Report Type: Spontaneous
  Country: FR (occurrence: FR)
  Receive Date: 20130725
  Receipt Date: 20130725
  Transmission Date: 20140515
  Serious: Yes (Hospitalization, Other)
  Sender: FDA-Public Use
  Company Number: FR-JNJFOC-20130710406

PATIENT
  Age: 60 Year
  Sex: Male

DRUGS (3)
  1. XARELTO [Suspect]
     Indication: CEREBROVASCULAR ACCIDENT PROPHYLAXIS
     Route: 048
     Dates: end: 201306
  2. XARELTO [Suspect]
     Indication: ATRIAL FIBRILLATION
     Route: 048
     Dates: end: 201306
  3. DOLIPRANE [Concomitant]
     Route: 065

REACTIONS (4)
  - Anaemia [Recovering/Resolving]
  - Muscle haemorrhage [Recovering/Resolving]
  - Pallor [Recovering/Resolving]
  - Haematoma evacuation [Recovering/Resolving]
